FAERS Safety Report 7796066 (Version 2)
Quarter: 2012Q4

REPORT INFORMATION
  Report Type: 
  Country: US (occurrence: US)
  Receive Date: 20110202
  Receipt Date: 20120827
  Transmission Date: 20130627
  Serious: Yes (Hospitalization, Other)
  Sender: FDA-Public Use
  Company Number: US-ELI_LILLY_AND_COMPANY-US200910007693

PATIENT
  Sex: Female
  Weight: 124.26 kg

DRUGS (18)
  1. ZYPREXA [Suspect]
     Dosage: 1 D/F, UNK
     Dates: start: 2001
  2. ZYPREXA [Suspect]
     Dosage: 10 mg, unknown
     Dates: start: 2003
  3. SEROQUEL [Concomitant]
  4. DEPAKOTE [Concomitant]
  5. LITHIUM [Concomitant]
  6. CELEXA [Concomitant]
     Dosage: 400 mg, UNK
  7. PROZAC [Concomitant]
  8. SURMONTIL [Concomitant]
  9. ESTROGENS CONJUGATED W/PROGESTERONE [Concomitant]
  10. HYDROXYZINE PAMOATE [Concomitant]
     Dosage: 25 mg, UNK
  11. HYDROCODONE [Concomitant]
  12. CLONAZEPAM [Concomitant]
     Dosage: 0.5 mg, unknown
  13. ACCUPRIL [Concomitant]
     Dosage: 5 mg, UNK
  14. SPIRONOLACTONE [Concomitant]
     Dosage: 50 mg, unknown
  15. ZOVIA [Concomitant]
  16. MECLIZINE [Concomitant]
     Dosage: 25 mg, UNK
  17. LISINOPRIL [Concomitant]
     Dosage: 5 mg, unknown
  18. FUROSEMIDE [Concomitant]
     Dosage: 20 mg, UNK

REACTIONS (12)
  - Foot operation [Unknown]
  - Depression [Unknown]
  - Weight increased [Recovering/Resolving]
  - Diabetes mellitus [Unknown]
  - Hypertension [Unknown]
  - Glycosuria [Unknown]
  - Hyperglycaemia [Unknown]
  - Vision blurred [Unknown]
  - Polydipsia [Unknown]
  - Hyperphagia [Unknown]
  - Sleep apnoea syndrome [Unknown]
  - Gastritis [Unknown]
